FAERS Safety Report 8156436-9 (Version None)
Quarter: 2012Q1

REPORT INFORMATION
  Report Type: 
  Country: None (occurrence: None)
  Receive Date: 20120222
  Receipt Date: 20120216
  Transmission Date: 20120608
  Serious: Yes (Death)
  Sender: FDA-Public Use
  Company Number: US-CELGENEUS-163-21880-12021898

PATIENT
  Sex: Male

DRUGS (7)
  1. DAPSONE [Concomitant]
     Dosage: 100 MILLIGRAM
     Route: 065
  2. ALLOPURINOL [Concomitant]
     Dosage: 100 MILLIGRAM
     Route: 065
  3. NEXIUM GRA [Concomitant]
     Dosage: 10 MILLIGRAM
     Route: 065
  4. ASPIRIN BUFF [Concomitant]
     Dosage: 325 MILLIGRAM
     Route: 065
  5. LEVOFLOXACIN [Concomitant]
     Dosage: 750 MILLIGRAM
     Route: 065
  6. ACYCLOVIR [Concomitant]
     Dosage: 800 MILLIGRAM
     Route: 065
  7. REVLIMID [Suspect]
     Dosage: 10 MILLIGRAM
     Route: 048
     Dates: start: 20111102

REACTIONS (1)
  - DEATH [None]
